FAERS Safety Report 15958157 (Version 2)
Quarter: 2019Q1

REPORT INFORMATION
  Report Type: Spontaneous
  Country: US (occurrence: US)
  Receive Date: 20190213
  Receipt Date: 20190227
  Transmission Date: 20190417
  Serious: Yes (Hospitalization, Other)
  Sender: FDA-Public Use
  Company Number: US-LUNDBECK-DKLU2060264

PATIENT
  Age: 7 Year
  Sex: Female
  Weight: 21 kg

DRUGS (6)
  1. SABRIL [Suspect]
     Active Substance: VIGABATRIN
     Route: 048
  2. SABRIL [Suspect]
     Active Substance: VIGABATRIN
     Indication: LENNOX-GASTAUT SYNDROME
     Route: 048
     Dates: start: 20180123
  3. SABRIL [Suspect]
     Active Substance: VIGABATRIN
     Route: 048
  4. CBD [Concomitant]
     Active Substance: CANNABIDIOL
     Indication: PRODUCT USED FOR UNKNOWN INDICATION
     Route: 065
  5. ONFI [Concomitant]
     Active Substance: CLOBAZAM
     Route: 048
  6. ONFI [Concomitant]
     Active Substance: CLOBAZAM
     Indication: PRODUCT USED FOR UNKNOWN INDICATION
     Route: 048

REACTIONS (5)
  - Escherichia urinary tract infection [Unknown]
  - Acute respiratory failure [Unknown]
  - Staphylococcal infection [Unknown]
  - Iron deficiency anaemia [Unknown]
  - Status epilepticus [Unknown]

NARRATIVE: CASE EVENT DATE: 20190204
